FAERS Safety Report 24386334 (Version 2)
Quarter: 2024Q4

REPORT INFORMATION
  Report Type: Report from Study
  Country: US (occurrence: US)
  Receive Date: 20241001
  Receipt Date: 20241016
  Transmission Date: 20250115
  Serious: Yes (Hospitalization)
  Sender: BIOGEN
  Company Number: US-BIOGEN-2024BI01283406

PATIENT
  Age: 67 Year
  Sex: Female
  Weight: 75.773 kg

DRUGS (27)
  1. AVONEX [Suspect]
     Active Substance: INTERFERON BETA-1A
     Indication: Product used for unknown indication
     Dosage: INJECT 30 MCG (1 INYECTOR) INTRAMUSCULARLY ONCE WEEKLY
     Route: 050
     Dates: start: 20190805, end: 20240329
  2. AVONEX [Suspect]
     Active Substance: INTERFERON BETA-1A
     Dosage: RESTARTED
     Route: 050
     Dates: start: 20240503
  3. AVONEX [Suspect]
     Active Substance: INTERFERON BETA-1A
  4. AVONEX [Suspect]
     Active Substance: INTERFERON BETA-1A
  5. FISH OIL [Concomitant]
     Active Substance: FISH OIL
     Indication: Product used for unknown indication
     Route: 050
  6. COENZYME Q10 [Concomitant]
     Active Substance: DIETARY SUPPLEMENT\UBIDECARENONE
     Indication: Product used for unknown indication
     Dosage: TAKE 1 CAPSULE TWICE A DAY BY ORAL ROUTE
     Route: 050
  7. DICLOFENAC SODIUM [Concomitant]
     Active Substance: DICLOFENAC SODIUM
     Indication: Product used for unknown indication
     Dosage: APPLY 2 GRAMS TOPICALLY TO THE AFFECTED AREA FOUR TIMES DAILY
     Route: 050
  8. VITAMIN D [Concomitant]
     Active Substance: VITAMIN D NOS
     Indication: Product used for unknown indication
     Route: 050
  9. VITAMIN B12 [Concomitant]
     Active Substance: CYANOCOBALAMIN
     Indication: Product used for unknown indication
     Dosage: TAKE 1 TABLET EVERY DAY BY ORAL ROUTE.
     Route: 050
  10. ASPIRIN [Concomitant]
     Active Substance: ASPIRIN
     Indication: Product used for unknown indication
     Dosage: DELAYED RELEASE, TAKE 1 TABLET EVERY DAY BY ORAL ROUTE
     Route: 050
  11. METOPROLOL SUCCINATE [Concomitant]
     Active Substance: METOPROLOL SUCCINATE
     Indication: Product used for unknown indication
     Dosage: EXTENDED RELEASE TABLET, TAKE 1 TABLET BY MOUTH EVERYDAY
     Route: 050
  12. CLOPIDOGREL [Concomitant]
     Active Substance: CLOPIDOGREL BISULFATE
     Indication: Product used for unknown indication
     Dosage: TAKE 1 TABLET BY MOUTH EVERY DAY
     Route: 050
  13. ATORVASTATIN CALCIUM [Concomitant]
     Active Substance: ATORVASTATIN CALCIUM
     Indication: Product used for unknown indication
     Route: 050
  14. CALCIUM CITRATE [Concomitant]
     Active Substance: CALCIUM CITRATE
     Indication: Product used for unknown indication
     Dosage: TAKE 1 TABLET TWICE A DAY BY ORAL ROUTE
     Route: 050
  15. DIAZEPAM [Concomitant]
     Active Substance: DIAZEPAM
     Indication: Product used for unknown indication
     Dosage: TAKE 1 TABLET BY MOUTH 30 TO 60 MINUTES BEFORE PROCEDURE
     Route: 050
  16. EPA-DHA [Concomitant]
     Indication: Product used for unknown indication
     Dosage: TAKE 1 CAPSULE EVERY DAY BY ORAL ROUTE
     Route: 050
  17. LORATADINE [Concomitant]
     Active Substance: LORATADINE
     Indication: Product used for unknown indication
     Dosage: TAKE 1 TABLET EVERY DAY BY ORAL ROUTE
     Route: 050
  18. METOPROLOL TARTRATE [Concomitant]
     Active Substance: METOPROLOL TARTRATE
     Indication: Product used for unknown indication
     Dosage: TAKE 1 TABLET TWICE A DAY BY ORAL ROUTE FOR 90 DAYS
     Route: 050
  19. METOPROLOL TARTRATE [Concomitant]
     Active Substance: METOPROLOL TARTRATE
     Dosage: TAKE 1/2 TABLET BY MOUTH TWICE DAILY
     Route: 050
  20. MUPIROCIN [Concomitant]
     Active Substance: MUPIROCIN
     Indication: Product used for unknown indication
     Dosage: MUPIROCIN 2 %, APPLY TO BOTH NOSTRILS TWICE DAILY FOR 5 DAYS PRIOR TO SURGERY
     Route: 050
  21. OLOPATADINE [Concomitant]
     Active Substance: OLOPATADINE
     Indication: Product used for unknown indication
     Dosage: OLOPATADINE 0.2%
     Route: 050
  22. TELMISARTAN [Concomitant]
     Active Substance: TELMISARTAN
     Indication: Product used for unknown indication
     Dosage: TAKE 1 TABLET BY MOUTH EVERY DAY
     Route: 050
  23. TELMISARTAN [Concomitant]
     Active Substance: TELMISARTAN
     Dosage: TAKE 1 TABLET BY MOUTH EVERY DAY
     Route: 050
  24. HERBALS\TURMERIC [Concomitant]
     Active Substance: HERBALS\TURMERIC
     Indication: Product used for unknown indication
     Route: 050
  25. VITAMIN C [Concomitant]
     Active Substance: ASCORBIC ACID
     Indication: Product used for unknown indication
     Dosage: TAKE 1 TABLET EVERY DAY BY ORAL ROUTE
     Route: 050
  26. VITAMIN D2 [Concomitant]
     Active Substance: ERGOCALCIFEROL
     Indication: Product used for unknown indication
     Route: 050
  27. ZINC [Concomitant]
     Active Substance: ZINC
     Indication: Product used for unknown indication
     Route: 050

REACTIONS (3)
  - Carotid artery stenosis [Recovered/Resolved]
  - Arteriosclerosis coronary artery [Recovered/Resolved]
  - Post procedural discomfort [Recovered/Resolved]

NARRATIVE: CASE EVENT DATE: 20190805
